FAERS Safety Report 6912865-X (Version None)
Quarter: 2010Q3

REPORT INFORMATION
  Report Type: 
  Country: None (occurrence: None)
  Receive Date: 20100806
  Receipt Date: 20090224
  Transmission Date: 20110219
  Serious: No
  Sender: FDA-Public Use
  Company Number: US-PFIZER INC-2009176266

PATIENT
  Sex: Female
  Weight: 49.9 kg

DRUGS (2)
  1. DETROL LA [Suspect]
     Indication: MICTURITION URGENCY
     Dosage: 2 MG, 1X/DAY
     Route: 048
     Dates: start: 20090201
  2. SYNTHROID [Concomitant]

REACTIONS (1)
  - CONSTIPATION [None]
